FAERS Safety Report 26010700 (Version 1)
Quarter: 2025Q4

REPORT INFORMATION
  Report Type: Spontaneous
  Country: EU (occurrence: EU)
  Receive Date: 20251107
  Receipt Date: 20251107
  Transmission Date: 20260118
  Serious: Yes (Hospitalization)
  Sender: RANBAXY
  Company Number: EU-SUN PHARMACEUTICAL INDUSTRIES LTD-2025RR-535125

PATIENT
  Age: 67 Year
  Sex: Male

DRUGS (2)
  1. OXALIPLATIN [Suspect]
     Active Substance: OXALIPLATIN
     Indication: Adenocarcinoma of colon
     Dosage: 1300 MILLIGRAM/SQ. METER, 1DOSE/21DAYS, 130 MG/M? EVERY 21 DAYS
     Route: 040
     Dates: start: 20250411, end: 20250530
  2. CAPECITABINE [Suspect]
     Active Substance: CAPECITABINE
     Indication: Adenocarcinoma of colon
     Dosage: 1 GRAM, BID, 1000MG EVERY 12 HOURS
     Route: 048
     Dates: start: 20250411, end: 20250616

REACTIONS (4)
  - Enteritis [Recovered/Resolved]
  - Neutropenia [Recovered/Resolved]
  - Thrombocytopenia [Recovered/Resolved]
  - Tinea pedis [Recovered/Resolved]

NARRATIVE: CASE EVENT DATE: 20250618
